FAERS Safety Report 5672433-7 (Version None)
Quarter: 2008Q1

REPORT INFORMATION
  Report Type: 
  Country: None (occurrence: None)
  Receive Date: 20080317
  Receipt Date: 20080306
  Transmission Date: 20080703
  Serious: Yes (Other)
  Sender: FDA-Public Use
  Company Number: B0511186A

PATIENT
  Age: 60 Year
  Sex: Male

DRUGS (8)
  1. FLUTICASONE PROPIONATE+SALMETEROL XINAFOATE [Suspect]
     Indication: ASTHMA
     Dosage: INHALED
     Route: 055
  2. ATAZANAVIR SULFATE [Suspect]
  3. DIDANOSINE [Concomitant]
  4. TENOFOVIR [Concomitant]
  5. LOPINAVIR AND RITONAVIR [Concomitant]
  6. EMTRICITABINE [Concomitant]
  7. GROWTH HORMONE [Concomitant]
  8. NANDROLONE DECANOATE [Concomitant]

REACTIONS (10)
  - ADRENAL SUPPRESSION [None]
  - CONDITION AGGRAVATED [None]
  - CUSHING'S SYNDROME [None]
  - DRUG INTERACTION [None]
  - FATIGUE [None]
  - HIV WASTING SYNDROME [None]
  - HYPERTENSION [None]
  - IATROGENIC INJURY [None]
  - KAPOSI'S SARCOMA [None]
  - WAIST CIRCUMFERENCE INCREASED [None]
